FAERS Safety Report 21781945 (Version 2)
Quarter: 2023Q2

REPORT INFORMATION
  Report Type: Spontaneous
  Country: JP (occurrence: JP)
  Receive Date: 20221227
  Receipt Date: 20230414
  Transmission Date: 20230722
  Serious: Yes (Other)
  Sender: FDA-Public Use
  Company Number: JP-002147023-NVSJ2022JP276969

PATIENT
  Age: 0 Year
  Sex: Male
  Weight: 6.9 kg

DRUGS (6)
  1. CYCLOSPORINE [Suspect]
     Active Substance: CYCLOSPORINE
     Indication: Kawasaki^s disease
     Dosage: 3 MG/KG/DAY
     Route: 042
     Dates: start: 20120629, end: 20120701
  2. CYCLOSPORINE [Suspect]
     Active Substance: CYCLOSPORINE
     Dosage: 2.5 MG/KG/DAY
     Route: 042
     Dates: start: 20120701, end: 20120702
  3. CYCLOSPORINE [Suspect]
     Active Substance: CYCLOSPORINE
     Dosage: 2.1 MG/KG/DAY
     Route: 042
     Dates: start: 20120702, end: 20120705
  4. CYCLOSPORINE [Suspect]
     Active Substance: CYCLOSPORINE
     Dosage: 1.5 MG/KG/DAY
     Route: 042
     Dates: start: 20120705, end: 20120709
  5. CYCLOSPORINE [Suspect]
     Active Substance: CYCLOSPORINE
     Dosage: 0.9 MG/KG/DAY
     Route: 042
     Dates: start: 20120709, end: 20120711
  6. ACEPRIN [Concomitant]
     Indication: Kawasaki^s disease
     Dosage: 66.7 MG
     Route: 048
     Dates: start: 20120624, end: 20120705

REACTIONS (3)
  - Hyperkalaemia [Recovered/Resolved]
  - Product use in unapproved indication [Unknown]
  - Product use issue [Unknown]

NARRATIVE: CASE EVENT DATE: 20120701
